FAERS Safety Report 5792133-2 (Version None)
Quarter: 2008Q2

REPORT INFORMATION
  Report Type: 
  Country: None (occurrence: None)
  Receive Date: 20080626
  Receipt Date: 20080616
  Transmission Date: 20081010
  Serious: Yes (Other)
  Sender: FDA-Public Use
  Company Number: PHHY2008JP11470

PATIENT
  Age: 66 Year
  Sex: Female

DRUGS (2)
  1. ZOMETA [Suspect]
     Indication: METASTASES TO BONE
     Dosage: 4 MG DAILY
     Route: 042
     Dates: start: 20060524, end: 20080310
  2. AREDIA [Suspect]
     Dosage: 90 MG DAILY
     Route: 042
     Dates: start: 20050615, end: 20060414

REACTIONS (2)
  - OSTEONECROSIS [None]
  - TOOTH LOSS [None]
